FAERS Safety Report 7631746-X (Version None)
Quarter: 2011Q3

REPORT INFORMATION
  Report Type: 
  Country: None (occurrence: None)
  Receive Date: 20110725
  Receipt Date: 20110302
  Transmission Date: 20111222
  Serious: Yes (Hospitalization)
  Sender: FDA-Public Use
  Company Number: US-BRISTOL-MYERS SQUIBB COMPANY-15583024

PATIENT
  Age: 91 Year
  Sex: Male
  Weight: 70 kg

DRUGS (6)
  1. DIGOXIN [Concomitant]
  2. ZOCOR [Concomitant]
  3. COUMADIN [Suspect]
     Indication: ATRIAL FIBRILLATION
     Dosage: FOR 15 YEARS
  4. ADVAIR DISKUS 100/50 [Concomitant]
  5. MAXAIR [Concomitant]
  6. VERAPAMIL [Concomitant]

REACTIONS (1)
  - BLOOD URINE PRESENT [None]
